FAERS Safety Report 4994217-5 (Version None)
Quarter: 2006Q2

REPORT INFORMATION
  Report Type: 
  Country: None (occurrence: None)
  Receive Date: 20060503
  Receipt Date: 20060322
  Transmission Date: 20061013
  Serious: Yes (Life-Threatening, Hospitalization)
  Sender: FDA-Public Use
  Company Number: 042

PATIENT
  Sex: Male
  Weight: 91.6266 kg

DRUGS (6)
  1. FAZACLO ODT [Suspect]
     Indication: SCHIZOPHRENIA, PARANOID TYPE
     Dosage: 150 MG PO DAILY
     Dates: start: 20060302, end: 20060322
  2. LISINOPRIL [Concomitant]
  3. LANTUS [Concomitant]
  4. TOPROL-XL [Concomitant]
  5. ZOLOFT [Concomitant]
  6. METAMUCIL [Concomitant]

REACTIONS (2)
  - COLITIS ISCHAEMIC [None]
  - IMPAIRED GASTRIC EMPTYING [None]
